FAERS Safety Report 4837163-X (Version None)
Quarter: 2005Q4

REPORT INFORMATION
  Report Type: 
  Country: None (occurrence: None)
  Receive Date: 20051122
  Receipt Date: 20051109
  Transmission Date: 20060501
  Serious: Yes (Other)
  Sender: FDA-Public Use
  Company Number: 2005154908

PATIENT
  Age: 80 Year
  Sex: Female
  Weight: 58.9676 kg

DRUGS (15)
  1. NEURONTIN [Suspect]
     Indication: TREMOR
     Dosage: 1800 MG (600 MG, 3 IN 1 D), ORAL
     Route: 048
  2. ACCUPRIL [Suspect]
     Indication: HYPERTENSION
     Dosage: ORAL
     Route: 048
     Dates: start: 20050101
  3. TRIAVIL (AMITRIPTYLINE HYDROCHLORIDE, PERPHENAZINE) [Suspect]
     Indication: NERVOUS SYSTEM DISORDER
  4. KLONOPIN [Suspect]
     Indication: NERVOUS SYSTEM DISORDER
  5. PRILOSEC [Suspect]
     Indication: ILL-DEFINED DISORDER
  6. LOPRESSOR [Suspect]
     Indication: BLOOD PRESSURE
  7. SYNTHROID [Concomitant]
  8. AVANDIA [Concomitant]
  9. CENTRUM SILVER (ASCORBIC ACID, CALCIUM, MINERALS NOS, RETINOL, TOCOPHE [Concomitant]
  10. MACRODANTIN [Concomitant]
  11. ASPIRIN [Concomitant]
  12. DARVOCET [Concomitant]
  13. ALL OTHER THERAPEUTIC PRODUCTS (ALL OTHER THERAPEUTIC PRODUCTS) [Concomitant]
  14. MIACALCIN [Concomitant]
  15. CLINDAMYCIN [Concomitant]

REACTIONS (11)
  - ASTHENIA [None]
  - BLOOD SODIUM INCREASED [None]
  - BODY HEIGHT DECREASED [None]
  - DIFFICULTY IN WALKING [None]
  - DRY MOUTH [None]
  - GLYCOSYLATED HAEMOGLOBIN INCREASED [None]
  - HYPERTENSION [None]
  - INTERVERTEBRAL DISC DISORDER [None]
  - MALNUTRITION [None]
  - MEMORY IMPAIRMENT [None]
  - POLYDIPSIA [None]
